FAERS Safety Report 10991093 (Version 3)
Quarter: 2015Q4

REPORT INFORMATION
  Report Type: Spontaneous
  Country: FR (occurrence: FR)
  Receive Date: 20150406
  Receipt Date: 20151015
  Transmission Date: 20160304
  Serious: Yes (Hospitalization)
  Sender: FDA-Public Use
  Company Number: FR-SA-2015SA041311

PATIENT
  Age: 83 Year
  Sex: Male

DRUGS (9)
  1. LANTUS [Suspect]
     Active Substance: INSULIN GLARGINE
     Route: 058
     Dates: start: 201402, end: 20150310
  2. ALLOPURINOL. [Suspect]
     Active Substance: ALLOPURINOL
     Route: 048
     Dates: start: 2014
  3. DAFALGAN [Concomitant]
     Active Substance: ACETAMINOPHEN
     Dates: end: 20150310
  4. SOTALEX [Concomitant]
     Active Substance: SOTALOL
     Route: 048
  5. ARESTAL [Suspect]
     Active Substance: LOPERAMIDE OXIDE
     Route: 048
     Dates: end: 20150310
  6. COUMADINE [Suspect]
     Active Substance: WARFARIN SODIUM
     Indication: ATRIAL FIBRILLATION
     Route: 048
     Dates: start: 201402, end: 20150309
  7. JANUMET [Suspect]
     Active Substance: METFORMIN HYDROCHLORIDE\SITAGLIPTIN PHOSPHATE
     Indication: DIABETES MELLITUS
     Route: 048
     Dates: start: 201404, end: 20150313
  8. LANZOR [Suspect]
     Active Substance: LANSOPRAZOLE
     Dosage: FORM: GASTRORESISTENT MICROGRANULES IN CAPSULE
     Route: 048
     Dates: end: 20150310
  9. COAPROVEL [Suspect]
     Active Substance: HYDROCHLOROTHIAZIDE\IRBESARTAN
     Indication: HYPERTENSION
     Route: 048
     Dates: start: 201404, end: 20150310

REACTIONS (6)
  - Thrombocytopenia [Recovered/Resolved]
  - Haematoma [Recovered/Resolved]
  - Gingival bleeding [Recovered/Resolved]
  - Haematuria [Recovered/Resolved]
  - Rectal haemorrhage [Recovered/Resolved]
  - Thrombocytopenic purpura [Recovered/Resolved]

NARRATIVE: CASE EVENT DATE: 20150308
